FAERS Safety Report 6862665-4 (Version None)
Quarter: 2010Q3

REPORT INFORMATION
  Report Type: 
  Country: None (occurrence: None)
  Receive Date: 20100716
  Receipt Date: 20100701
  Transmission Date: 20110219
  Serious: Yes (Hospitalization)
  Sender: FDA-Public Use
  Company Number: 1000015018

PATIENT
  Age: 43 Year
  Sex: Female
  Weight: 77 kg

DRUGS (7)
  1. LEXAPRO [Suspect]
     Indication: ANXIETY
     Dosage: 5 MG (5 MG,1 IN 1 D), ORAL
     Route: 048
     Dates: start: 20100615, end: 20100620
  2. LEXAPRO [Suspect]
     Indication: ANXIETY
     Dosage: 10 MG (10 MG,1 IN 1 D), ORAL
     Route: 048
     Dates: start: 20100621, end: 20100629
  3. CAFFEINE ANHYDROU (TABLETS) [Concomitant]
  4. PANTOPRAZOLE (TABLETS) [Concomitant]
  5. ALPRAZOLAM [Concomitant]
  6. ISOMETHEPTENE MUCATE (TABLETS) [Concomitant]
  7. DIPYRONE SODIUM (TABLETS) [Concomitant]

REACTIONS (7)
  - BLOOD PRESSURE DECREASED [None]
  - DIZZINESS [None]
  - DYSPNOEA [None]
  - FEELING HOT [None]
  - HEADACHE [None]
  - TINNITUS [None]
  - VOMITING [None]
